FAERS Safety Report 9816535 (Version 3)
Quarter: 2014Q1

REPORT INFORMATION
  Report Type: Report from Study
  Country: US (occurrence: US)
  Receive Date: 20140114
  Receipt Date: 20140123
  Transmission Date: 20141002
  Serious: Yes (Disabling)
  Sender: FDA-Public Use
  Company Number: US-B.I. PHARMACEUTICALS,INC./RIDGEFIELD-2013-BI-35377BI

PATIENT
  Age: 81 Year
  Sex: Female

DRUGS (16)
  1. GILOTRIF [Suspect]
     Indication: LUNG NEOPLASM MALIGNANT
     Dosage: 20 MG
     Route: 048
     Dates: start: 20131018, end: 20131227
  2. FELODIPINE ER [Concomitant]
  3. METOPROLOL TARTARATE [Concomitant]
  4. LIPITOR [Concomitant]
  5. PROBIOTIC FORMULA [Concomitant]
  6. GLUCOSAMINE [Concomitant]
  7. VITAMIN C [Concomitant]
  8. VITAMIN D [Concomitant]
  9. LOPERAMIDE [Concomitant]
  10. AMLODIPINE-BENAZEPRIL [Concomitant]
  11. METOPROLOL [Concomitant]
  12. PROBIOTIC [Concomitant]
  13. GLUCOSAMINE-CHONDR CAPLET [Concomitant]
     Dosage: FORMULATION: CAPLET
  14. PV VITAMIN C 500MG TABLET [Concomitant]
  15. GNP VITAMIN D 1000 UNIT TAB [Concomitant]
  16. LOPERAMIDE 2MG CAPLET [Concomitant]
     Dosage: FORMULATION: CAPLET

REACTIONS (20)
  - Dehydration [Recovered/Resolved]
  - Vomiting [Recovered/Resolved]
  - Diarrhoea [Recovered/Resolved]
  - Blood test abnormal [Not Recovered/Not Resolved]
  - Gingival swelling [Not Recovered/Not Resolved]
  - Gingival bleeding [Not Recovered/Not Resolved]
  - Abdominal discomfort [Not Recovered/Not Resolved]
  - Flatulence [Not Recovered/Not Resolved]
  - Malaise [Not Recovered/Not Resolved]
  - Rhinorrhoea [Not Recovered/Not Resolved]
  - Diarrhoea [Not Recovered/Not Resolved]
  - Fatigue [Recovered/Resolved]
  - Dry skin [Not Recovered/Not Resolved]
  - Pain in extremity [Not Recovered/Not Resolved]
  - Diarrhoea [Not Recovered/Not Resolved]
  - Medication error [Recovered/Resolved]
  - Diarrhoea [Not Recovered/Not Resolved]
  - Vomiting [Unknown]
  - Dehydration [Unknown]
  - Diarrhoea [Unknown]
